FAERS Safety Report 6355576-4 (Version None)
Quarter: 2009Q3

REPORT INFORMATION
  Report Type: 
  Country: None (occurrence: None)
  Receive Date: 20090910
  Receipt Date: 20090825
  Transmission Date: 20100115
  Serious: Yes (Hospitalization)
  Sender: FDA-Public Use
  Company Number: 2009AL004859

PATIENT
  Age: 71 Year
  Sex: Male

DRUGS (22)
  1. DIGOXIN [Suspect]
     Dosage: 0.125MG, DAILY, PO
     Route: 048
     Dates: start: 20000801
  2. AMARYL [Concomitant]
  3. LASIX [Concomitant]
  4. KLOR-CON [Concomitant]
  5. ADVAIR HFA [Concomitant]
  6. ZOCOR [Concomitant]
  7. AMIODARONE HCL [Concomitant]
  8. TEMAZEPAM [Concomitant]
  9. ASPIRIN [Concomitant]
  10. LISINOPRIL [Concomitant]
  11. COUMADIN [Concomitant]
  12. DOXYCYCLINE [Concomitant]
  13. PRILOSEC [Concomitant]
  14. NASACORT [Concomitant]
  15. SINGULAIR [Concomitant]
  16. SIMVASTATIN [Concomitant]
  17. ZYRTEC [Concomitant]
  18. LORTAB [Concomitant]
  19. LYRICA [Concomitant]
  20. SOMA [Concomitant]
  21. FERROUS SULFATE TAB [Concomitant]
  22. ACTOS [Concomitant]

REACTIONS (15)
  - ACUTE RESPIRATORY FAILURE [None]
  - ASTHENIA [None]
  - BRADYCARDIA [None]
  - BRONCHITIS [None]
  - CARDIAC FAILURE [None]
  - DEEP VEIN THROMBOSIS [None]
  - HEART INJURY [None]
  - HYPOGLYCAEMIA [None]
  - INJURY [None]
  - LETHARGY [None]
  - PAIN [None]
  - PYREXIA [None]
  - RENAL FAILURE [None]
  - RENAL FAILURE ACUTE [None]
  - RESPIRATORY DISTRESS [None]
